FAERS Safety Report 4589837-6 (Version None)
Quarter: 2005Q1

REPORT INFORMATION
  Report Type: 
  Country: None (occurrence: None)
  Receive Date: 20050223
  Receipt Date: 20050214
  Transmission Date: 20050727
  Serious: Yes (Hospitalization)
  Sender: FDA-Public Use
  Company Number: FR-ABBOTT-05P-056-0290675-00

PATIENT
  Sex: Female

DRUGS (5)
  1. TARKA [Suspect]
     Indication: DRUG USE FOR UNKNOWN INDICATION
     Route: 048
     Dates: start: 20050110, end: 20050118
  2. KETOPROFEN [Suspect]
     Indication: DRUG USE FOR UNKNOWN INDICATION
     Route: 030
     Dates: start: 20050117, end: 20050118
  3. ACETAMINOPHEN W/ PROPOXYPHENE HCL [Suspect]
     Indication: DRUG USE FOR UNKNOWN INDICATION
     Route: 048
     Dates: start: 20050114, end: 20050118
  4. THIOCOLCHICOSIDE [Concomitant]
     Indication: PERIARTHRITIS
     Route: 048
     Dates: start: 20050117, end: 20050118
  5. THIOCOLCHICOSIDE [Concomitant]
     Route: 048
     Dates: start: 20050101

REACTIONS (4)
  - INFLUENZA [None]
  - PRURIGO [None]
  - PRURITUS [None]
  - RASH MACULO-PAPULAR [None]
